FAERS Safety Report 11366126 (Version 1)
Quarter: 2015Q3

REPORT INFORMATION
  Report Type: Report from Study
  Country: US (occurrence: US)
  Receive Date: 20150811
  Receipt Date: 20150811
  Transmission Date: 20151125
  Serious: Yes (Hospitalization)
  Sender: FDA-Public Use
  Company Number: US-JNJFOC-20150401183

PATIENT
  Sex: Female

DRUGS (1)
  1. REMICADE [Suspect]
     Active Substance: INFLIXIMAB
     Indication: RHEUMATOID ARTHRITIS
     Dosage: 0,2,6 WEEKS, THEN EVERY 8 WEEKS
     Route: 042

REACTIONS (5)
  - Incontinence [Not Recovered/Not Resolved]
  - Fall [Recovered/Resolved]
  - Herpes zoster [Unknown]
  - Drug dose omission [Unknown]
  - Joint injury [Unknown]
